FAERS Safety Report 9200605 (Version 1)
Quarter: 2013Q1

REPORT INFORMATION
  Report Type: Spontaneous
  Country: US (occurrence: GB)
  Receive Date: 20130329
  Receipt Date: 20130329
  Transmission Date: 20140127
  Serious: Yes (Hospitalization)
  Sender: FDA-Public Use
  Company Number: GB-PFIZER INC-2008008442JJ

PATIENT
  Age: 66 Year
  Sex: Female

DRUGS (5)
  1. IBUPROFEN (UNSPECIFIED) [Suspect]
     Indication: SPINAL OSTEOARTHRITIS
     Dosage: UNK
     Route: 065
  2. AMOXICILLIN [Concomitant]
     Indication: OTITIS EXTERNA
     Route: 048
  3. BECOTIDE [Concomitant]
     Indication: ASTHMA
     Route: 055
  4. GENTAMICIN [Concomitant]
     Indication: OTITIS EXTERNA
  5. SALBUTAMOL INHALANT ^RATIOPHARM^ [Concomitant]
     Indication: ASTHMA
     Route: 055

REACTIONS (3)
  - Erosive duodenitis [Unknown]
  - Gastritis erosive [Unknown]
  - Upper gastrointestinal haemorrhage [Unknown]
